FAERS Safety Report 5991893-5 (Version None)
Quarter: 2008Q4

REPORT INFORMATION
  Report Type: 
  Country: None (occurrence: None)
  Receive Date: 20081211
  Receipt Date: 20080508
  Transmission Date: 20090506
  Serious: No
  Sender: FDA-Public Use
  Company Number: US-AMGEN-KDL277822

PATIENT
  Sex: Male
  Weight: 106.3 kg

DRUGS (5)
  1. ENBREL [Suspect]
     Indication: ANKYLOSING SPONDYLITIS
     Route: 058
     Dates: start: 20080416, end: 20080506
  2. ISONIAZID [Concomitant]
     Dates: start: 20071008
  3. VITAMIN B6 [Concomitant]
     Dates: start: 20071008
  4. NEXIUM [Concomitant]
     Dates: start: 20080101
  5. FENTANYL-100 [Concomitant]
     Dates: start: 20071001

REACTIONS (5)
  - CHILLS [None]
  - HOT FLUSH [None]
  - HYPERHIDROSIS [None]
  - NASOPHARYNGITIS [None]
  - PYREXIA [None]
